FAERS Safety Report 9935228 (Version 1)
Quarter: 2014Q1

REPORT INFORMATION
  Report Type: Spontaneous
  Country: BR (occurrence: BR)
  Receive Date: 20140228
  Receipt Date: 20140228
  Transmission Date: 20141002
  Serious: Yes (Death, Hospitalization, Other)
  Sender: FDA-Public Use
  Company Number: BR-UCBSA-113536

PATIENT
  Sex: Female

DRUGS (5)
  1. CIMZIA [Suspect]
     Dosage: DOSE: 200MG/ML
  2. IBUPROFEN [Concomitant]
  3. BETATRINTA [Concomitant]
     Indication: ANTIINFLAMMATORY THERAPY
  4. BETATRINTA [Concomitant]
     Indication: ANTIINFLAMMATORY THERAPY
  5. ACETAMINOPHEN [Concomitant]

REACTIONS (3)
  - Pneumonia [Fatal]
  - Septic shock [Fatal]
  - Neutropenia [Fatal]
